FAERS Safety Report 4294770-3 (Version None)
Quarter: 2004Q1

REPORT INFORMATION
  Report Type: 
  Country: None (occurrence: None)
  Receive Date: 20040213
  Receipt Date: 20020904
  Transmission Date: 20041129
  Serious: Yes (Life-Threatening, Disabling, Other)
  Sender: FDA-Public Use
  Company Number: WAES 0209USA00435

PATIENT
  Age: 55 Year
  Sex: Male
  Weight: 91 kg

DRUGS (5)
  1. VICODIN [Concomitant]
     Dates: start: 20000601
  2. ANTINEOPLASTIC (UNSPECIFIED) [Suspect]
     Indication: NON-HODGKIN'S LYMPHOMA
  3. PRILOSEC [Concomitant]
  4. VIOXX [Suspect]
     Indication: BACK PAIN
     Route: 048
     Dates: start: 20000601, end: 20011101
  5. VITAMINS (UNSPECIFIED) [Concomitant]

REACTIONS (10)
  - CARDIAC FAILURE CONGESTIVE [None]
  - CARDIOMYOPATHY [None]
  - DIFFUSE LARGE B-CELL LYMPHOMA RECURRENT [None]
  - DISTURBANCE IN ATTENTION [None]
  - EJECTION FRACTION DECREASED [None]
  - GASTRIC DISORDER [None]
  - MAJOR DEPRESSION [None]
  - SEBORRHOEIC KERATOSIS [None]
  - SLEEP DISORDER [None]
  - UPPER RESPIRATORY TRACT INFECTION [None]
